FAERS Safety Report 16301823 (Version 2)
Quarter: 2019Q2

REPORT INFORMATION
  Report Type: Spontaneous
  Country: US (occurrence: US)
  Receive Date: 20190511
  Receipt Date: 20190519
  Transmission Date: 20190711
  Serious: No
  Sender: FDA-Public Use
  Company Number: US-JNJFOC-20190439871

PATIENT
  Sex: Male
  Weight: 51.26 kg

DRUGS (1)
  1. RISPERDAL [Suspect]
     Active Substance: RISPERIDONE
     Indication: AFFECTIVE DISORDER
     Dosage: HALF TABLET BY MOUTH
     Route: 048
     Dates: start: 201305

REACTIONS (2)
  - Blood prolactin increased [Unknown]
  - Drug ineffective [Unknown]
